FAERS Safety Report 20813860 (Version 1)
Quarter: 2022Q2

REPORT INFORMATION
  Report Type: Report from Study
  Country: US (occurrence: US)
  Receive Date: 20220511
  Receipt Date: 20220511
  Transmission Date: 20220720
  Serious: Yes (Hospitalization)
  Sender: FDA-Public Use
  Company Number: US-PFIZER INC-202200641241

PATIENT
  Age: 74 Year
  Sex: Female
  Weight: 50 kg

DRUGS (37)
  1. IRINOTECAN HYDROCHLORIDE [Suspect]
     Active Substance: IRINOTECAN HYDROCHLORIDE
     Indication: Pancreatic carcinoma metastatic
     Dosage: 256.5 MG, DAYS 1 AND 15 OF EACH 28-DAY CYCLE
     Route: 042
     Dates: start: 20211221, end: 20220209
  2. IRINOTECAN HYDROCHLORIDE [Suspect]
     Active Substance: IRINOTECAN HYDROCHLORIDE
     Dosage: 190.8 MG, C3D1
     Route: 042
     Dates: start: 20220223, end: 20220223
  3. IRINOTECAN HYDROCHLORIDE [Suspect]
     Active Substance: IRINOTECAN HYDROCHLORIDE
     Dosage: DAYS 1 AND 15 OF EACH 28-DAY CYCLE (190.8 MG,1 IN 2 WK)
     Route: 042
     Dates: start: 20220406
  4. OXALIPLATIN [Suspect]
     Active Substance: OXALIPLATIN
     Indication: Pancreatic carcinoma metastatic
     Dosage: DAYS 1 AND 15 OF EACH 28-DAY CYCLE (145.35 MG,1 IN 2 WK)
     Route: 042
     Dates: start: 20211221, end: 20220209
  5. OXALIPLATIN [Suspect]
     Active Substance: OXALIPLATIN
     Dosage: C3D1 (135.15 MG,1 IN 2 WK)
     Route: 042
     Dates: start: 20220223, end: 20220223
  6. OXALIPLATIN [Suspect]
     Active Substance: OXALIPLATIN
     Dosage: DAYS 1 AND 15 OF EACH 28-DAY CYCLE (135.15 MG,1 IN 2 WK)
     Route: 042
     Dates: start: 20220406
  7. LEUCOVORIN [Suspect]
     Active Substance: LEUCOVORIN
     Indication: Pancreatic carcinoma metastatic
     Dosage: DAYS 1 AND 15 OF EACH 28-DAY CYCLE (684 MG,1 IN 2 WK)
     Route: 042
     Dates: start: 20211221, end: 20220209
  8. LEUCOVORIN [Suspect]
     Active Substance: LEUCOVORIN
     Dosage: C3D1 (636 MG,1 IN 2 WK)
     Route: 042
     Dates: start: 20220223, end: 20220223
  9. LEUCOVORIN [Suspect]
     Active Substance: LEUCOVORIN
     Dosage: DAYS 1 AND 15 OF EACH 28-DAY CYCLE (636 MG,1 IN 2 WK)
     Route: 042
     Dates: start: 20220406
  10. FLUOROURACIL [Suspect]
     Active Substance: FLUOROURACIL
     Indication: Pancreatic carcinoma metastatic
     Dosage: DAYS 1 AND 15 OF EACH 28-DAY CYCLE (4104 MG,1 IN 2 WK)
     Route: 042
     Dates: start: 20211221, end: 20220209
  11. FLUOROURACIL [Suspect]
     Active Substance: FLUOROURACIL
     Dosage: C3D1 (3816 MG,1 IN 2 WK)
     Route: 042
     Dates: start: 20220223, end: 20220223
  12. FLUOROURACIL [Suspect]
     Active Substance: FLUOROURACIL
     Dosage: DAYS 1 AND 15 OF EACH 28-DAY CYCLE (3816 MG,1 IN 2 WK)
     Route: 042
     Dates: start: 20220406
  13. GILORALIMAB [Suspect]
     Active Substance: GILORALIMAB
     Indication: Pancreatic carcinoma metastatic
     Dosage: DAY 3 OF EACH 28-DAY CYCLE (18.36 MG,1 IN 4 WK)
     Route: 042
     Dates: start: 20211223, end: 20220128
  14. GILORALIMAB [Suspect]
     Active Substance: GILORALIMAB
     Dosage: DAY 3 OF EACH 28-DAY CYCLE (16.1 MG,1 IN 4 WK)
     Route: 042
     Dates: start: 20220225, end: 20220225
  15. BUDIGALIMAB [Suspect]
     Active Substance: BUDIGALIMAB
     Indication: Pancreatic carcinoma metastatic
     Dosage: DAY 3 OF EACH 28-DAY CYCLE (500 MG,1 IN 4 WK)
     Route: 042
     Dates: start: 20211223, end: 20220225
  16. VITAMIN D NOS [Concomitant]
     Active Substance: VITAMIN D NOS
     Indication: Vitamin D deficiency
     Dosage: 2000 IU,1 IN 1 D
     Route: 048
     Dates: start: 20150101
  17. DIPHENHYDRAMINE [Concomitant]
     Active Substance: DIPHENHYDRAMINE
     Indication: Contrast media allergy
     Dosage: 50 MG, AS NEEDED
     Route: 048
     Dates: start: 20211217
  18. PREDNISONE [Concomitant]
     Active Substance: PREDNISONE
     Indication: Contrast media allergy
     Dosage: 50 MG,1 AS REQUIRED
     Route: 048
     Dates: start: 20211216
  19. HYDROCORTISONE [Concomitant]
     Active Substance: HYDROCORTISONE
     Indication: Haemorrhoids
     Dosage: 2.5 %,1 AS REQUIRED
     Route: 061
     Dates: start: 20180725
  20. LIDOCAINE [Concomitant]
     Active Substance: LIDOCAINE
     Indication: Rectal haemorrhage
     Dosage: 4 %,1 AS REQUIRED
     Route: 061
     Dates: start: 20170101
  21. ASPIRIN [Concomitant]
     Active Substance: ASPIRIN
     Indication: Coronary artery disease
     Dosage: 81 MG,1 IN 1 D
     Route: 048
     Dates: start: 20161201
  22. CAMPHOR [Concomitant]
     Active Substance: CAMPHOR
     Indication: Herpes virus infection
     Dosage: OIL, 1 APPLICATION (1 AS REQUIRED)
     Route: 061
     Dates: start: 20211226
  23. CAMPHOR [Concomitant]
     Active Substance: CAMPHOR
     Indication: Lip dry
  24. DIPHENHYDRAMINE [Concomitant]
     Active Substance: DIPHENHYDRAMINE
     Indication: Pruritus
     Dosage: 50 MG,1 AS REQUIRED
     Route: 048
     Dates: start: 20220104
  25. FLUCONAZOLE [Concomitant]
     Active Substance: FLUCONAZOLE
     Indication: Vaginal infection
     Dosage: 150 MG,1 ONCE
     Route: 048
     Dates: start: 20220207
  26. PETROLATUM [Concomitant]
     Active Substance: PETROLATUM
     Indication: Dry skin
     Dosage: 14 %,1 AS REQUIRED
     Route: 061
     Dates: start: 20220207
  27. LACTATED RINGERS SOLUTION [Concomitant]
     Active Substance: CALCIUM CHLORIDE\POTASSIUM CHLORIDE\SODIUM CHLORIDE\SODIUM LACTATE
     Indication: Hypotension
     Dosage: 1 LIT,1 ONCE
     Route: 042
     Dates: start: 20220128
  28. ONDANSETRON [Concomitant]
     Active Substance: ONDANSETRON
     Indication: Vomiting
     Dosage: 8 MG,1 AS REQUIRED
     Route: 048
     Dates: start: 20211213
  29. ONDANSETRON [Concomitant]
     Active Substance: ONDANSETRON
     Dosage: 8 MG,1 ONCE
     Route: 042
     Dates: start: 20220307, end: 20220307
  30. PETROLATUM/WOOL FAT [Concomitant]
     Indication: Decubitus ulcer
     Dosage: LANOLIN + PETROLATUM, 1 APPLICATION (1 AS REQUIRED)
     Route: 061
     Dates: start: 20220115
  31. VITAMIN B12 [Concomitant]
     Active Substance: CYANOCOBALAMIN
     Indication: Nutritional supplementation
     Dosage: 2000 IU,1 IN 1 D
     Route: 048
     Dates: start: 20150101
  32. ZINC [Concomitant]
     Active Substance: ZINC
     Indication: Nutritional supplementation
     Dosage: 50 MG,1 IN 1 D
     Route: 048
     Dates: start: 20150101
  33. VITAMIN C [Concomitant]
     Active Substance: ASCORBIC ACID
     Indication: Nutritional supplementation
     Dosage: 1000 MG,1 IN 1 D
     Route: 048
     Dates: start: 20150101
  34. COD LIVER OIL [Concomitant]
     Active Substance: COD LIVER OIL
     Indication: Nutritional supplementation
     Dosage: 1000 MG,1 IN 1 D
     Route: 048
     Dates: start: 20150101
  35. LIDOCAINE [Concomitant]
     Active Substance: LIDOCAINE
     Indication: Back pain
     Dosage: 5 %,4 IN 24 HR
     Route: 062
     Dates: start: 20220315
  36. IMODIUM [Concomitant]
     Active Substance: LOPERAMIDE HYDROCHLORIDE
     Indication: Diarrhoea
     Dosage: 2 MG,1 IN 1 AS REQUIRED
     Route: 048
     Dates: start: 20220215
  37. SPIRONOLACTONE [Concomitant]
     Active Substance: SPIRONOLACTONE
     Indication: Oedema peripheral
     Dosage: 50 MG,1 IN 1 D
     Route: 048
     Dates: start: 20220402

REACTIONS (4)
  - Deep vein thrombosis [Not Recovered/Not Resolved]
  - Nausea [Not Recovered/Not Resolved]
  - Abdominal pain [Recovered/Resolved]
  - Vomiting [Recovered/Resolved]

NARRATIVE: CASE EVENT DATE: 20220409
